FAERS Safety Report 10907162 (Version 1)
Quarter: 2015Q1

REPORT INFORMATION
  Report Type: Spontaneous
  Country: US (occurrence: US)
  Receive Date: 20150312
  Receipt Date: 20150312
  Transmission Date: 20150721
  Serious: Yes (Hospitalization, Other)
  Sender: FDA-Public Use
  Company Number: US-ASTRAZENECA-2015SE21451

PATIENT
  Age: 62 Year
  Sex: Female
  Weight: 81.6 kg

DRUGS (3)
  1. NEXIUM [Suspect]
     Active Substance: ESOMEPRAZOLE MAGNESIUM
     Indication: GASTROOESOPHAGEAL REFLUX DISEASE
     Route: 048
     Dates: start: 2009
  2. NEXIUM [Suspect]
     Active Substance: ESOMEPRAZOLE MAGNESIUM
     Indication: GASTROOESOPHAGEAL REFLUX DISEASE
     Route: 048
     Dates: start: 201501
  3. NEXIUM [Suspect]
     Active Substance: ESOMEPRAZOLE MAGNESIUM
     Indication: GASTROOESOPHAGEAL REFLUX DISEASE
     Dosage: SOMETIMES 3 CAPSULES A DAY
     Route: 048

REACTIONS (16)
  - Pneumonia [Recovered/Resolved]
  - Suicidal ideation [Recovering/Resolving]
  - Constipation [Unknown]
  - Vomiting [Recovered/Resolved]
  - Intentional product misuse [Unknown]
  - Cardiac failure congestive [Unknown]
  - Chronic obstructive pulmonary disease [Unknown]
  - Suicidal behaviour [Unknown]
  - Weight increased [Recovering/Resolving]
  - Thermal burn [Unknown]
  - Malaise [Unknown]
  - Drug effect incomplete [Unknown]
  - Aphthous stomatitis [Recovered/Resolved]
  - Depression [Unknown]
  - Urine analysis abnormal [Unknown]
  - Chest pain [Unknown]

NARRATIVE: CASE EVENT DATE: 2014
